FAERS Safety Report 18886503 (Version 10)
Quarter: 2021Q3

REPORT INFORMATION
  Report Type: Report from Study
  Country: US (occurrence: US)
  Receive Date: 20210212
  Receipt Date: 20210825
  Transmission Date: 20211014
  Serious: Yes (Hospitalization, Other)
  Sender: FDA-Public Use
  Company Number: NVSC2021US033791

PATIENT
  Age: 71 Year
  Sex: Male

DRUGS (5)
  1. ENTRESTO [Suspect]
     Active Substance: SACUBITRIL\VALSARTAN
     Indication: PRODUCT USED FOR UNKNOWN INDICATION
     Dosage: 1 DF, BID(24/26 MG)
     Route: 048
     Dates: start: 20210207
  2. SPIRONOLACTONE. [Concomitant]
     Active Substance: SPIRONOLACTONE
     Indication: PRODUCT USED FOR UNKNOWN INDICATION
     Route: 065
  3. METOPROLOL. [Concomitant]
     Active Substance: METOPROLOL
     Indication: PRODUCT USED FOR UNKNOWN INDICATION
     Dosage: UNK
     Route: 065
  4. LASIX [Concomitant]
     Active Substance: FUROSEMIDE
     Indication: PRODUCT USED FOR UNKNOWN INDICATION
     Dosage: UNK
     Route: 065
  5. ENTRESTO [Suspect]
     Active Substance: SACUBITRIL\VALSARTAN
     Dosage: 1 DF, BID(49/51 MG)
     Route: 048

REACTIONS (13)
  - Lung disorder [Unknown]
  - Dizziness [Unknown]
  - Dyspnoea [Unknown]
  - Blood sodium abnormal [Unknown]
  - Pyrexia [Unknown]
  - Multiple fractures [Unknown]
  - Fall [Unknown]
  - Hypotension [Recovering/Resolving]
  - Spinal fracture [Unknown]
  - Pain in extremity [Unknown]
  - Injury [Unknown]
  - Product dose omission issue [Unknown]
  - Rib fracture [Unknown]

NARRATIVE: CASE EVENT DATE: 20210605
